FAERS Safety Report 7772817-7 (Version None)
Quarter: 2011Q3

REPORT INFORMATION
  Report Type: 
  Country: None (occurrence: None)
  Receive Date: 20110922
  Receipt Date: 20110413
  Transmission Date: 20111222
  Serious: Yes (Hospitalization, Other)
  Sender: FDA-Public Use
  Company Number: US-ASTRAZENECA-2009UW11287

PATIENT
  Age: 679 Month
  Sex: Male

DRUGS (12)
  1. SEROQUEL [Suspect]
     Route: 048
     Dates: start: 20081014
  2. TRICOR [Concomitant]
     Dosage: 145 MG ABB DAILY
     Route: 048
     Dates: start: 20080927
  3. CARISOPRODOL [Concomitant]
     Dosage: 350 TO 1050 MG
     Route: 048
     Dates: start: 20081014
  4. ALPRAZOLAM [Concomitant]
     Dosage: 0.5 TO 1 MG
     Dates: start: 20081017
  5. KEPPRA [Concomitant]
     Dosage: 250 TO 1000 MG
     Route: 048
     Dates: start: 20081120
  6. DEPAKOTE [Concomitant]
     Route: 048
     Dates: start: 20090101
  7. SEROQUEL [Suspect]
     Indication: SLEEP DISORDER
     Route: 048
     Dates: start: 20080101
  8. TEGRETOL-XR [Concomitant]
     Route: 048
     Dates: start: 20090101
  9. SIMVASTATIN [Concomitant]
     Dates: start: 20090201
  10. AMBIEN [Concomitant]
     Route: 048
     Dates: start: 20090101
  11. TEMAZEPAM [Concomitant]
     Route: 048
     Dates: start: 20081027
  12. ENALAPRIL MALEATE AND HYDROCHLOROTHIAZIDE [Concomitant]
     Dosage: 10-25 MG, 5-12.5 MG, DAILY
     Route: 048
     Dates: start: 20081105

REACTIONS (3)
  - DIABETES MELLITUS [None]
  - ABDOMINAL PAIN [None]
  - DIABETIC KETOACIDOSIS [None]
